FAERS Safety Report 16869166 (Version 35)
Quarter: 2023Q2

REPORT INFORMATION
  Report Type: Report from Study
  Country: CN (occurrence: None)
  Receive Date: 20190930
  Receipt Date: 20230614
  Transmission Date: 20230722
  Serious: Yes (Hospitalization)
  Sender: FDA-Public Use
  Company Number: CN-ROCHE-2413017

PATIENT
  Age: 45 Year
  Sex: Female
  Weight: 66 kg

DRUGS (24)
  1. BEVACIZUMAB [Suspect]
     Active Substance: BEVACIZUMAB
     Indication: Ovarian epithelial cancer
     Dosage: ON 09/SEP/2019, SHE RECEIVED THE MOST RECENT DOSE OF BEVACIZUMAB PRIOR TO SERIOUS ADVERSE EVENT ONSE
     Route: 042
     Dates: start: 20190704
  2. CARBOPLATIN [Suspect]
     Active Substance: CARBOPLATIN
     Indication: Ovarian epithelial cancer
     Dosage: DOSE: AREA UNDER THE CURVE (AUC) OF 6 MG/ML/MIN?ON 09/SEP/2019, SHE RECEIVED THE MOST RECENT DOSE OF
     Route: 042
     Dates: start: 20190613
  3. PACLITAXEL [Suspect]
     Active Substance: PACLITAXEL
     Indication: Ovarian epithelial cancer
     Dosage: ON 09/SEP/2019, SHE RECEIVED THE MOST RECENT DOSE OF PACLITAXEL (292 MG) PRIOR TO SERIOUS ADVERSE EV
     Route: 042
     Dates: start: 20190613
  4. DEXAMETHASONE [Concomitant]
     Active Substance: DEXAMETHASONE
     Dates: start: 20190612, end: 20190613
  5. DEXAMETHASONE [Concomitant]
     Active Substance: DEXAMETHASONE
     Dates: start: 20190703, end: 20190704
  6. DEXAMETHASONE [Concomitant]
     Active Substance: DEXAMETHASONE
     Dates: start: 20190725, end: 20190726
  7. DEXAMETHASONE [Concomitant]
     Active Substance: DEXAMETHASONE
     Dates: start: 20190815, end: 20190816
  8. DEXAMETHASONE [Concomitant]
     Active Substance: DEXAMETHASONE
     Dates: start: 20190909, end: 20190909
  9. DEXAMETHASONE [Concomitant]
     Active Substance: DEXAMETHASONE
     Dates: start: 20191008, end: 20191009
  10. PROMETHAZINE HYDROCHLORIDE [Concomitant]
     Active Substance: PROMETHAZINE HYDROCHLORIDE
     Dates: start: 20190613, end: 20190613
  11. PROMETHAZINE HYDROCHLORIDE [Concomitant]
     Active Substance: PROMETHAZINE HYDROCHLORIDE
     Dates: start: 20190704, end: 20190704
  12. PROMETHAZINE HYDROCHLORIDE [Concomitant]
     Active Substance: PROMETHAZINE HYDROCHLORIDE
     Dates: start: 20190726, end: 20190726
  13. PROMETHAZINE HYDROCHLORIDE [Concomitant]
     Active Substance: PROMETHAZINE HYDROCHLORIDE
     Dates: start: 20190816, end: 20190816
  14. PROMETHAZINE HYDROCHLORIDE [Concomitant]
     Active Substance: PROMETHAZINE HYDROCHLORIDE
     Dates: start: 20190909, end: 20190909
  15. PROMETHAZINE HYDROCHLORIDE [Concomitant]
     Active Substance: PROMETHAZINE HYDROCHLORIDE
     Dates: start: 20191009, end: 20191009
  16. CIMETIDINE [Concomitant]
     Active Substance: CIMETIDINE
     Dates: start: 20190613, end: 20190613
  17. CIMETIDINE [Concomitant]
     Active Substance: CIMETIDINE
     Dates: start: 20190704, end: 20190704
  18. CIMETIDINE [Concomitant]
     Active Substance: CIMETIDINE
     Dates: start: 20190726, end: 20190726
  19. CIMETIDINE [Concomitant]
     Active Substance: CIMETIDINE
     Dates: start: 20190816, end: 20190816
  20. CIMETIDINE [Concomitant]
     Active Substance: CIMETIDINE
     Dates: start: 20190909, end: 20190909
  21. CIMETIDINE [Concomitant]
     Active Substance: CIMETIDINE
     Dates: start: 20191009, end: 20191009
  22. ONDANSETRON [Concomitant]
     Active Substance: ONDANSETRON
     Dates: start: 20190726, end: 20190726
  23. VITAMIN C [Concomitant]
     Active Substance: ASCORBIC ACID
     Dates: start: 20190705, end: 20190710
  24. VITAMIN C [Concomitant]
     Active Substance: ASCORBIC ACID
     Dates: start: 20191231, end: 20200103

REACTIONS (2)
  - Gamma-glutamyltransferase increased [Not Recovered/Not Resolved]
  - Platelet count decreased [Recovering/Resolving]

NARRATIVE: CASE EVENT DATE: 20190703
